FAERS Safety Report 18114625 (Version 3)
Quarter: 2021Q2

REPORT INFORMATION
  Report Type: Spontaneous
  Country: None (occurrence: US)
  Receive Date: 20200805
  Receipt Date: 20210622
  Transmission Date: 20210717
  Serious: Yes (Other)
  Sender: FDA-Public Use
  Company Number: US-GLAXOSMITHKLINE-US2020151099

PATIENT
  Sex: Female

DRUGS (9)
  1. ZANTAC [Suspect]
     Active Substance: RANITIDINE HYDROCHLORIDE
     Indication: COLON CANCER
     Dosage: 75 MG, WE
     Route: 065
     Dates: start: 200301, end: 201202
  2. ZANTAC [Suspect]
     Active Substance: RANITIDINE HYDROCHLORIDE
     Indication: COLON CANCER
     Dosage: 75 MG, WE
     Route: 065
     Dates: start: 200301, end: 201202
  3. RANITIDINE CAPSULE [Suspect]
     Active Substance: RANITIDINE
     Indication: COLON CANCER
     Dosage: 75 MG, WE
     Route: 065
     Dates: start: 200301, end: 201201
  4. RANITIDINE. [Suspect]
     Active Substance: RANITIDINE
  5. RANITIDINE. [Suspect]
     Active Substance: RANITIDINE
     Indication: COLON CANCER
     Dosage: 75 MG, WE
     Route: 065
     Dates: start: 200301, end: 201201
  6. RANITIDINE. [Suspect]
     Active Substance: RANITIDINE
     Indication: COLON CANCER
     Dosage: 75 MG, WE
     Route: 065
     Dates: start: 200301, end: 201201
  7. ZANTAC [Suspect]
     Active Substance: RANITIDINE HYDROCHLORIDE
  8. ZANTAC [Suspect]
     Active Substance: RANITIDINE HYDROCHLORIDE
     Indication: COLON CANCER
     Dosage: 75 MG, WE
     Route: 065
     Dates: start: 200301, end: 201202
  9. RANITIDINE. [Suspect]
     Active Substance: RANITIDINE
     Indication: COLON CANCER
     Dosage: 75 MG, WE
     Route: 065
     Dates: start: 200301, end: 201201

REACTIONS (2)
  - Colorectal cancer [Unknown]
  - Small intestine carcinoma [Unknown]
